FAERS Safety Report 6542498-9 (Version None)
Quarter: 2010Q1

REPORT INFORMATION
  Report Type: 
  Country: None (occurrence: None)
  Receive Date: 20100119
  Receipt Date: 20100107
  Transmission Date: 20100710
  Serious: Yes (Hospitalization, Other)
  Sender: FDA-Public Use
  Company Number: AU-WYE-G05297910

PATIENT
  Sex: Female

DRUGS (6)
  1. VENLAFAXINE HYDROCHLORIDE [Interacting]
     Indication: DEPRESSION
     Dosage: 300MG 1 IN 1 DAY
     Route: 048
  2. FOLIC ACID [Concomitant]
     Indication: PROPHYLAXIS OF NEURAL TUBE DEFECT
     Dosage: 5MG 1 IN 1 DAY
     Route: 048
  3. QUETIAPINE [Interacting]
     Indication: PSYCHOTIC DISORDER
     Dosage: 1 IN 1 DAY, THEN 900-1000MG/DAY
     Route: 048
  4. ELEVIT [Concomitant]
     Indication: VITAMIN SUPPLEMENTATION
     Dosage: 1 IN 1 DAY
  5. HALOPERIDOL [Suspect]
     Indication: PSYCHOTIC DISORDER
     Dosage: 5MG ONCE A DAY ON AN UNKNOWN DATE THEN 7.5MG TO 12.5MG DAILY ON AN UNKNOWN DATE, THEN 7.5MG/DAY
     Route: 048
  6. SERTRALINE HCL [Interacting]
     Indication: DEPRESSION
     Dosage: 50MG 1 IN 1 DAY

REACTIONS (9)
  - DRUG EXPOSURE DURING PREGNANCY [None]
  - DRUG INTERACTION [None]
  - EMOTIONAL DISTRESS [None]
  - HYPEREMESIS GRAVIDARUM [None]
  - OBESITY [None]
  - POSTPARTUM DEPRESSION [None]
  - PSYCHOTIC DISORDER [None]
  - URINARY TRACT INFECTION [None]
  - WEIGHT DECREASED [None]
